FAERS Safety Report 20391820 (Version 1)
Quarter: 2022Q1

REPORT INFORMATION
  Report Type: Report from Study
  Country: US (occurrence: US)
  Receive Date: 20220128
  Receipt Date: 20220128
  Transmission Date: 20220423
  Serious: Yes (Disabling, Other)
  Sender: FDA-Public Use
  Company Number: US-JNJFOC-20220136370

PATIENT
  Age: 46 Year
  Sex: Female

DRUGS (2)
  1. SPRAVATO [Suspect]
     Active Substance: ESKETAMINE
     Indication: Depression
     Dosage: 1 DOSES
     Dates: start: 20210728, end: 20210728
  2. SPRAVATO [Suspect]
     Active Substance: ESKETAMINE
     Dosage: 10 DOSES
     Dates: start: 20210730, end: 20210910

REACTIONS (2)
  - Disability [Unknown]
  - Surgery [Unknown]
